FAERS Safety Report 8946107 (Version 2)
Quarter: 2013Q1

REPORT INFORMATION
  Report Type: Spontaneous
  Country: US (occurrence: US)
  Receive Date: 20121205
  Receipt Date: 20130116
  Transmission Date: 20140127
  Serious: Yes (Hospitalization)
  Sender: FDA-Public Use
  Company Number: US-BAYER-2012-126519

PATIENT
  Age: 21 Year
  Sex: Female

DRUGS (2)
  1. MIRENA [Suspect]
     Indication: CONTRACEPTION
     Dosage: 20 MCG/24HR, CONT
     Route: 015
     Dates: start: 20121108, end: 20121116
  2. LIDOCAIN [Concomitant]
     Indication: ANALGESIC THERAPY

REACTIONS (4)
  - Uterine perforation [None]
  - Procedural pain [None]
  - Medical device discomfort [None]
  - Abdominal pain lower [None]
